FAERS Safety Report 6152485-0 (Version None)
Quarter: 2009Q2

REPORT INFORMATION
  Report Type: 
  Country: None (occurrence: None)
  Receive Date: 20090413
  Receipt Date: 20090404
  Transmission Date: 20091009
  Serious: Yes (Other)
  Sender: FDA-Public Use
  Company Number: PHHY2009MX12876

PATIENT
  Sex: Female

DRUGS (1)
  1. DIOVAN HCT [Suspect]
     Indication: HYPERTENSION
     Dosage: 1 TABLET (320 MG VALSARTAN/12.5 MG HYDROCHLOROTHIAZIDE) PER DAY
     Route: 048

REACTIONS (3)
  - EYE OPERATION [None]
  - SKIN CANCER [None]
  - SKIN OPERATION [None]
